FAERS Safety Report 5604074-1 (Version None)
Quarter: 2008Q1

REPORT INFORMATION
  Report Type: 
  Country: None (occurrence: None)
  Receive Date: 20080128
  Receipt Date: 20080122
  Transmission Date: 20080703
  Serious: Yes (Hospitalization, Other)
  Sender: FDA-Public Use
  Company Number: US-BRISTOL-MYERS SQUIBB COMPANY-14049621

PATIENT
  Age: 70 Year
  Sex: Female
  Weight: 59 kg

DRUGS (11)
  1. ORENCIA [Suspect]
     Indication: RHEUMATOID ARTHRITIS
     Route: 042
     Dates: start: 20060301, end: 20070501
  2. VYTORIN [Concomitant]
     Dates: start: 20050101
  3. PLAVIX [Concomitant]
     Dates: start: 20070101
  4. DIOVAN [Concomitant]
     Dates: start: 20070101
  5. TOPROL-XL [Concomitant]
     Dates: start: 20070101
  6. CELEBREX [Concomitant]
     Dates: end: 20070101
  7. PRILOSEC [Concomitant]
  8. LISINOPRIL [Concomitant]
     Dates: end: 20070101
  9. CALCIUM GLUCONATE [Concomitant]
  10. ARAVA [Concomitant]
     Dates: start: 20051101
  11. TYLENOL [Concomitant]

REACTIONS (2)
  - MYOCARDIAL INFARCTION [None]
  - UTERINE CANCER [None]
